FAERS Safety Report 10985035 (Version 1)
Quarter: 2015Q1

REPORT INFORMATION
  Report Type: Spontaneous
  Country: US (occurrence: None)
  Receive Date: 20150312
  Receipt Date: 20150312
  Transmission Date: 20150721
  Serious: Yes (Other)
  Sender: FDA-Public Use
  Company Number: 1000069936

PATIENT
  Age: 23 Year
  Sex: Female

DRUGS (4)
  1. SAVELLA [Suspect]
     Active Substance: MILNACIPRAN HYDROCHLORIDE
  2. SAVELLA [Suspect]
     Active Substance: MILNACIPRAN HYDROCHLORIDE
     Dosage: 100 MG (50 MG, 2 IN 1 D)
     Dates: start: 20140813
  3. ZOLOFT (SERTRALINE HYDROCHLORIDE) (SERTRALINE HYDROCHLORIDE) [Concomitant]
  4. LISINOPRIL (LISINOPRIL) (LISINOPRIL) [Concomitant]
     Active Substance: LISINOPRIL

REACTIONS (2)
  - Heart rate increased [None]
  - Nasopharyngitis [None]
